FAERS Safety Report 18271552 (Version 1)
Quarter: 2020Q3

REPORT INFORMATION
  Report Type: Spontaneous
  Country: ES (occurrence: ES)
  Receive Date: 20200916
  Receipt Date: 20200916
  Transmission Date: 20201103
  Serious: Yes (Other)
  Sender: FDA-Public Use
  Company Number: ES-AMGEN-ESPSP2020146425

PATIENT
  Age: 53 Year
  Sex: Female

DRUGS (8)
  1. PREDNISONE. [Concomitant]
     Active Substance: PREDNISONE
     Indication: RENAL TRANSPLANT
  2. GLUCANTIME [Suspect]
     Active Substance: MEGLUMINE ANTIMONIATE
     Indication: PRODUCT USED FOR UNKNOWN INDICATION
     Route: 065
  3. AMIKACIN. [Concomitant]
     Active Substance: AMIKACIN
     Indication: SPLENOMEGALY
  4. CEFTAZIDIME. [Concomitant]
     Active Substance: CEFTAZIDIME
     Indication: SPLENOMEGALY
  5. AMIKACIN. [Concomitant]
     Active Substance: AMIKACIN
     Indication: PYONEPHROSIS
  6. CEFTAZIDIME. [Concomitant]
     Active Substance: CEFTAZIDIME
     Indication: PYONEPHROSIS
  7. CYCLOSPORINE. [Concomitant]
     Active Substance: CYCLOSPORINE
     Indication: RENAL TRANSPLANT
  8. GRANULOKINE [Suspect]
     Active Substance: FILGRASTIM
     Indication: PANCYTOPENIA
     Dosage: UNK
     Route: 065

REACTIONS (15)
  - Pleural effusion [Unknown]
  - Abdominal pain [Unknown]
  - Tachycardia [Unknown]
  - Urticaria [Unknown]
  - Asthenia [Unknown]
  - Off label use [Unknown]
  - Diarrhoea [Unknown]
  - Visceral leishmaniasis [Unknown]
  - Oedema peripheral [Unknown]
  - Weight increased [Unknown]
  - Dyspnoea [Unknown]
  - Drug ineffective for unapproved indication [Unknown]
  - Ascites [Unknown]
  - Vomiting [Unknown]
  - Cough [Unknown]
